FAERS Safety Report 8967733 (Version 1)
Quarter: 2012Q4

REPORT INFORMATION
  Report Type: Spontaneous
  Country: US (occurrence: None)
  Receive Date: 20121213
  Receipt Date: 20121213
  Transmission Date: 20130627
  Serious: Yes (Life-Threatening, Hospitalization)
  Sender: FDA-Public Use
  Company Number: None

PATIENT
  Age: 51 Year
  Sex: Male
  Weight: 70.5 kg

DRUGS (3)
  1. CETUXIMAB [Suspect]
     Indication: NON-SMALL CELL LUNG CANCER
     Dosage: Cetuximab 400mg/m2 week 1 IV
     Route: 042
     Dates: start: 20120927, end: 20121123
  2. CETUXIMAB [Suspect]
     Indication: NON-SMALL CELL LUNG CANCER
     Dosage: Cetuximab250mg/m2  weekly  IV
     Route: 042
  3. RIDAFORALIMUS [Suspect]
     Dosage: Ridaforalimus 20mg  D1-5 PO
     Route: 048
     Dates: start: 20120927, end: 20121126

REACTIONS (5)
  - Pericardial effusion [None]
  - Cardiac tamponade [None]
  - Cardiogenic shock [None]
  - Respiratory failure [None]
  - Tracheal stenosis [None]
